FAERS Safety Report 6838944-3 (Version None)
Quarter: 2010Q3

REPORT INFORMATION
  Report Type: 
  Country: None (occurrence: None)
  Receive Date: 20100713
  Receipt Date: 20071016
  Transmission Date: 20110219
  Serious: Yes (Other)
  Sender: FDA-Public Use
  Company Number: US-PFIZER INC-2007048240

PATIENT
  Sex: Female
  Weight: 72.7 kg

DRUGS (12)
  1. CHANTIX [Suspect]
     Indication: SMOKING CESSATION THERAPY
     Dates: start: 20070524
  2. CHANTIX [Suspect]
     Indication: TOBACCO ABUSE
  3. SODIUM CHLORIDE [Concomitant]
     Route: 045
  4. CELEBREX [Concomitant]
     Dates: start: 20070420
  5. XANAX [Concomitant]
     Indication: ANXIETY
     Route: 048
     Dates: start: 20040101
  6. RANITIDINE [Concomitant]
     Indication: GASTRIC DISORDER
     Dates: start: 20060101
  7. ALLEGRA [Concomitant]
     Dates: start: 20060101
  8. ADALAT CC [Concomitant]
     Indication: RAYNAUD'S PHENOMENON
     Dates: start: 20060101
  9. ZOLOFT [Concomitant]
     Dates: start: 20070420
  10. FLEXERIL [Concomitant]
     Dates: start: 20070111
  11. MIRALAX [Concomitant]
     Dates: start: 20060101
  12. ROXICODONE [Concomitant]
     Dosage: 2 EVERY 4 HOURS
     Dates: start: 20060101

REACTIONS (7)
  - CHAPPED LIPS [None]
  - HOT FLUSH [None]
  - HUNGER [None]
  - HYPERHIDROSIS [None]
  - HYPERPHAGIA [None]
  - TREMOR [None]
  - WEIGHT INCREASED [None]
